FAERS Safety Report 6441115-6 (Version None)
Quarter: 2009Q4

REPORT INFORMATION
  Report Type: 
  Country: None (occurrence: None)
  Receive Date: 20091113
  Receipt Date: 20091113
  Transmission Date: 20100525
  Serious: Yes (Death, Other)
  Sender: FDA-Public Use
  Company Number: None

PATIENT
  Age: 4 Year
  Sex: Male
  Weight: 16.3295 kg

DRUGS (2)
  1. TYLENOL (CAPLET) [Suspect]
     Indication: BODY TEMPERATURE INCREASED
     Dosage: 1.6 ML 1 PO
     Route: 048
     Dates: start: 20091101, end: 20091101
  2. TYLENOL (CAPLET) [Suspect]
     Indication: MYALGIA
     Dosage: 1.6 ML 1 PO
     Route: 048
     Dates: start: 20091101, end: 20091101

REACTIONS (5)
  - EYE ROLLING [None]
  - PRODUCT QUALITY ISSUE [None]
  - PULSE ABSENT [None]
  - RESPIRATORY ARREST [None]
  - UNRESPONSIVE TO STIMULI [None]
